FAERS Safety Report 4449454-5 (Version None)
Quarter: 2004Q3

REPORT INFORMATION
  Report Type: 
  Country: None (occurrence: None)
  Receive Date: 20040914
  Receipt Date: 20040827
  Transmission Date: 20050211
  Serious: Yes (Hospitalization)
  Sender: FDA-Public Use
  Company Number: 04P-056-0271841-00

PATIENT
  Age: 53 Year
  Sex: Female

DRUGS (6)
  1. DEPAKOTE [Suspect]
     Dosage: 500 MG, 1 IN 1 D, PER ORAL
     Route: 048
     Dates: end: 20040508
  2. OLANZAPINE [Suspect]
     Dosage: 10 MG, 1 IN 1 D, PER ORAL
     Route: 048
     Dates: start: 20040405, end: 20040508
  3. PRAZEPAM [Concomitant]
  4. LEVOTHYROXINE SODIUM [Concomitant]
  5. ESTRADIOL [Concomitant]
  6. PROMEGESTONE [Concomitant]

REACTIONS (3)
  - FALL [None]
  - NEUROLEPTIC MALIGNANT SYNDROME [None]
  - URINARY TRACT INFECTION [None]
